FAERS Safety Report 6178344-5 (Version None)
Quarter: 2009Q2

REPORT INFORMATION
  Report Type: 
  Country: None (occurrence: None)
  Receive Date: 20090504
  Receipt Date: 20090424
  Transmission Date: 20091009
  Serious: Yes (Other)
  Sender: FDA-Public Use
  Company Number: DK-SANOFI-SYNTHELABO-A01200904110

PATIENT
  Age: 58 Year
  Sex: Female

DRUGS (6)
  1. BETOLVEX [Concomitant]
     Indication: VITAMIN B12 DEFICIENCY
     Route: 048
     Dates: start: 20080301
  2. SIMVASTATIN [Concomitant]
     Indication: HYPERCHOLESTEROLAEMIA
     Route: 065
     Dates: start: 20080407
  3. ATACAND [Concomitant]
     Indication: HYPERTENSION
     Route: 048
     Dates: start: 20080407
  4. SELO-ZOK [Concomitant]
     Indication: PROPHYLAXIS
     Route: 048
     Dates: start: 20080407
  5. PLAVIX [Suspect]
     Indication: ACUTE MYOCARDIAL INFARCTION
     Route: 048
     Dates: start: 20080401, end: 20090405
  6. HJERDYL [Concomitant]
     Indication: ANTIPLATELET THERAPY
     Route: 048

REACTIONS (2)
  - AGEUSIA [None]
  - ANOSMIA [None]
